FAERS Safety Report 11359565 (Version 1)
Quarter: 2015Q3

REPORT INFORMATION
  Report Type: Spontaneous
  Country: US (occurrence: None)
  Receive Date: 20150807
  Receipt Date: 20150807
  Transmission Date: 20151125
  Serious: No
  Sender: FDA-Public Use
  Company Number: None

PATIENT
  Age: 49 Year
  Sex: Female

DRUGS (1)
  1. HUMIRA [Suspect]
     Active Substance: ADALIMUMAB
     Indication: RHEUMATOID ARTHRITIS
     Route: 058
     Dates: start: 20150703, end: 20150720

REACTIONS (5)
  - Injection site erythema [None]
  - Hypersensitivity [None]
  - Injection site reaction [None]
  - Injection site swelling [None]
  - Pruritus [None]

NARRATIVE: CASE EVENT DATE: 201507
